FAERS Safety Report 5988679-4 (Version None)
Quarter: 2008Q4

REPORT INFORMATION
  Report Type: 
  Country: None (occurrence: None)
  Receive Date: 20081210
  Receipt Date: 20081201
  Transmission Date: 20090506
  Serious: Yes (Disabling, Other)
  Sender: FDA-Public Use
  Company Number: PHEH2008US10448

PATIENT
  Sex: Female
  Weight: 77.551 kg

DRUGS (1)
  1. TYZEKA [Suspect]
     Indication: HEPATITIS B
     Dosage: 600 MG, AFTER EVERY OTHER DIALYSIS
     Route: 048
     Dates: start: 20080207

REACTIONS (3)
  - CARDIOMYOPATHY [None]
  - ECHOCARDIOGRAM ABNORMAL [None]
  - LEFT VENTRICULAR DYSFUNCTION [None]
